FAERS Safety Report 23632308 (Version 2)
Quarter: 2024Q2

REPORT INFORMATION
  Report Type: Spontaneous
  Country: CA (occurrence: CA)
  Receive Date: 20240314
  Receipt Date: 20240507
  Transmission Date: 20240715
  Serious: Yes (Other)
  Sender: FDA-Public Use
  Company Number: CA-SANDOZ-SDZ2024CA027377

PATIENT
  Age: 3 Month
  Sex: Male

DRUGS (9)
  1. CANNABIS SATIVA FLOWERING TOP [Suspect]
     Active Substance: CANNABIS SATIVA FLOWERING TOP
     Indication: Epilepsy
     Dosage: UNK
     Route: 065
  2. CLOBAZAM [Suspect]
     Active Substance: CLOBAZAM
     Indication: Epilepsy
     Dosage: UNK
     Route: 065
  3. LAMOTRIGINE [Suspect]
     Active Substance: LAMOTRIGINE
     Indication: Epilepsy
     Dosage: UNK
     Route: 065
  4. PREDNISOLONE [Suspect]
     Active Substance: PREDNISOLONE
     Indication: Epilepsy
     Dosage: UNK
     Route: 065
  5. RUFINAMIDE [Suspect]
     Active Substance: RUFINAMIDE
     Dosage: UNK
     Route: 048
  6. RUFINAMIDE [Suspect]
     Active Substance: RUFINAMIDE
     Indication: Epilepsy
     Dosage: UNK
     Route: 065
  7. TOPIRAMATE [Suspect]
     Active Substance: TOPIRAMATE
     Indication: Epilepsy
     Dosage: UNK
     Route: 065
  8. VALPROIC ACID [Suspect]
     Active Substance: VALPROIC ACID
     Indication: Epilepsy
     Dosage: UNK
     Route: 065
  9. VIGABATRIN [Suspect]
     Active Substance: VIGABATRIN
     Indication: Epilepsy
     Dosage: UNK
     Route: 065

REACTIONS (3)
  - Product use issue [Unknown]
  - Therapy non-responder [Unknown]
  - Treatment failure [Unknown]
